FAERS Safety Report 16880598 (Version 1)
Quarter: 2019Q4

REPORT INFORMATION
  Report Type: Spontaneous
  Country: US (occurrence: US)
  Receive Date: 20190807
  Receipt Date: 20190807
  Transmission Date: 20200122
  Serious: No
  Sender: FDA-Public Use
  Company Number: None

PATIENT
  Age: 48 Year
  Sex: Female

DRUGS (38)
  1. ALLEGRA [Concomitant]
     Active Substance: FEXOFENADINE HYDROCHLORIDE
  2. EPIPEN [Concomitant]
     Active Substance: EPINEPHRINE
  3. HYDRALAZINE [Concomitant]
     Active Substance: HYDRALAZINE HYDROCHLORIDE
  4. LEXAPRO [Concomitant]
     Active Substance: ESCITALOPRAM OXALATE
  5. IPRATROPIUM [Concomitant]
     Active Substance: IPRATROPIUM
  6. PREVACID [Concomitant]
     Active Substance: LANSOPRAZOLE
  7. SINGULAIR [Concomitant]
     Active Substance: MONTELUKAST SODIUM
  8. ASPIRIN. [Concomitant]
     Active Substance: ASPIRIN
  9. CLONAZEPAM. [Concomitant]
     Active Substance: CLONAZEPAM
  10. MAG OXIDE [Concomitant]
     Active Substance: MAGNESIUM OXIDE
  11. SPIRIVA [Concomitant]
     Active Substance: TIOTROPIUM BROMIDE MONOHYDRATE
  12. TROKENDI [Concomitant]
     Active Substance: TOPIRAMATE
  13. LEVOTHYROXINE. [Concomitant]
     Active Substance: LEVOTHYROXINE
  14. RANITIDINE. [Concomitant]
     Active Substance: RANITIDINE
  15. SYMBICORT [Concomitant]
     Active Substance: BUDESONIDE\FORMOTEROL FUMARATE DIHYDRATE
  16. VIBERZIM [Concomitant]
  17. ZANTAC [Concomitant]
     Active Substance: RANITIDINE HYDROCHLORIDE
  18. ALBUTEROL. [Concomitant]
     Active Substance: ALBUTEROL
  19. DEXILANT [Concomitant]
     Active Substance: DEXLANSOPRAZOLE
  20. FIORICET [Concomitant]
     Active Substance: ACETAMINOPHEN\BUTALBITAL\CAFFEINE
  21. HUMALOG [Concomitant]
     Active Substance: INSULIN LISPRO
  22. LEVSIN [Concomitant]
     Active Substance: HYOSCYAMINE SULFATE
  23. PATADAY [Concomitant]
     Active Substance: OLOPATADINE HYDROCHLORIDE
  24. TESSALON PEARLS [Concomitant]
  25. APTIOM [Concomitant]
     Active Substance: ESLICARBAZEPINE ACETATE
  26. LOTRISONE [Concomitant]
     Active Substance: BETAMETHASONE DIPROPIONATE\CLOTRIMAZOLE
  27. QNASL [Concomitant]
     Active Substance: BECLOMETHASONE DIPROPIONATE
  28. CIPRODEX [Concomitant]
     Active Substance: CIPROFLOXACIN HYDROCHLORIDE\DEXAMETHASONE
  29. GLUCAGON. [Concomitant]
     Active Substance: GLUCAGON
  30. LYRICA [Concomitant]
     Active Substance: PREGABALIN
  31. PENLAC SOLUTION [Concomitant]
  32. XOLAIR [Suspect]
     Active Substance: OMALIZUMAB
     Indication: ASTHMA
     Route: 058
     Dates: start: 20160129
  33. AVAPRO [Concomitant]
     Active Substance: IRBESARTAN
  34. AZELASTINE. [Concomitant]
     Active Substance: AZELASTINE HYDROCHLORIDE
  35. DEPAKOTE [Concomitant]
     Active Substance: DIVALPROEX SODIUM
  36. PRAVACHOL [Concomitant]
     Active Substance: PRAVASTATIN SODIUM
  37. PROAIR HFA [Concomitant]
     Active Substance: ALBUTEROL SULFATE
  38. PROMETHAZINE [Concomitant]
     Active Substance: PROMETHAZINE HYDROCHLORIDE

REACTIONS (2)
  - Dehydration [None]
  - Dizziness [None]

NARRATIVE: CASE EVENT DATE: 20190806
